FAERS Safety Report 7050318-1 (Version None)
Quarter: 2010Q4

REPORT INFORMATION
  Report Type: 
  Country: None (occurrence: None)
  Receive Date: 20101018
  Receipt Date: 20101004
  Transmission Date: 20110411
  Serious: Yes (Other)
  Sender: FDA-Public Use
  Company Number: US-AMGEN INC.-KDL443649

PATIENT

DRUGS (7)
  1. PROCRIT [Suspect]
     Indication: ANAEMIA
     Dosage: UNK UNK, QWK
     Route: 058
     Dates: start: 20100701, end: 20100701
  2. PREDNISONE [Concomitant]
     Dosage: UNK UNK, TID
     Route: 048
     Dates: start: 20100501
  3. IRON SULFATETHIAMIN COMPOUND TAB [Concomitant]
     Dosage: UNK UNK, TID
     Route: 048
     Dates: start: 20100501
  4. LEVOTHYROXINE SODIUM [Concomitant]
     Dosage: UNK UNK, QD
     Route: 048
  5. CYANOCOBALAMIN [Concomitant]
     Dosage: UNK UNK, QD
     Route: 048
     Dates: start: 20100501
  6. MECLIZINE [Concomitant]
     Dosage: UNK UNK, PRN
     Route: 048
  7. BLOOD CELLS, PACKED HUMAN [Concomitant]

REACTIONS (3)
  - HYPOTENSION [None]
  - INCOHERENT [None]
  - SYNCOPE [None]
